FAERS Safety Report 11037920 (Version 1)
Quarter: 2015Q2

REPORT INFORMATION
  Report Type: Spontaneous
  Country: US (occurrence: None)
  Receive Date: 20150415
  Receipt Date: 20150415
  Transmission Date: 20150821
  Serious: Yes (Hospitalization)
  Sender: FDA-Public Use
  Company Number: None

PATIENT
  Age: 66 Year
  Sex: Male
  Weight: 79.8 kg

DRUGS (1)
  1. LISINOPRIL. [Suspect]
     Active Substance: LISINOPRIL
     Indication: HYPERTENSION
     Dosage: MG EVERYDAY PO
     Route: 048
     Dates: start: 20140501, end: 20140715

REACTIONS (2)
  - Blood pressure inadequately controlled [None]
  - Angioedema [None]

NARRATIVE: CASE EVENT DATE: 20140715
